FAERS Safety Report 7978692-X (Version None)
Quarter: 2011Q4

REPORT INFORMATION
  Report Type: 
  Country: None (occurrence: None)
  Receive Date: 20111206
  Receipt Date: 20111201
  Transmission Date: 20120403
  Serious: Yes (Hospitalization, Other)
  Sender: FDA-Public Use
  Company Number: 2010SP062381

PATIENT
  Age: 33 Year
  Sex: Female
  Weight: 117.9352 kg

DRUGS (2)
  1. NUVARING [Suspect]
     Indication: CONTRACEPTION
     Dates: start: 20070101, end: 20080717
  2. ZOLOFT [Concomitant]

REACTIONS (22)
  - BREAST MASS [None]
  - GASTRIC BYPASS [None]
  - ABDOMINAL PAIN [None]
  - MYALGIA [None]
  - SYNCOPE [None]
  - ABORTION INCOMPLETE [None]
  - PHARYNGITIS STREPTOCOCCAL [None]
  - FATIGUE [None]
  - CALCULUS BLADDER [None]
  - NEPHROLITHIASIS [None]
  - EYE SWELLING [None]
  - BACK PAIN [None]
  - CHOLELITHIASIS [None]
  - FACTOR V LEIDEN MUTATION [None]
  - PULMONARY EMBOLISM [None]
  - HEADACHE [None]
  - CERVICAL DYSPLASIA [None]
  - NAUSEA [None]
  - THROMBOPHLEBITIS SUPERFICIAL [None]
  - FEMALE STERILISATION [None]
  - DEPRESSION [None]
  - SLEEP APNOEA SYNDROME [None]
